FAERS Safety Report 5756172-X (Version None)
Quarter: 2008Q2

REPORT INFORMATION
  Report Type: 
  Country: None (occurrence: None)
  Receive Date: 20080602
  Receipt Date: 20080521
  Transmission Date: 20081010
  Serious: Yes (Life-Threatening, Hospitalization, Other)
  Sender: FDA-Public Use
  Company Number: GB-PFIZER INC-2007070549

PATIENT
  Sex: Female
  Weight: 70 kg

DRUGS (5)
  1. CHANTIX [Suspect]
     Indication: SMOKING CESSATION THERAPY
     Route: 048
     Dates: start: 20070701, end: 20070722
  2. INSULIN DETEMIR [Concomitant]
     Route: 058
  3. NOVORAPID [Concomitant]
     Route: 058
  4. STATINS [Concomitant]
  5. INSULIN [Concomitant]
     Route: 058

REACTIONS (3)
  - CARDIAC ARREST [None]
  - CONVULSION [None]
  - VENTRICULAR FIBRILLATION [None]
